FAERS Safety Report 12160216 (Version 1)
Quarter: 2016Q1

REPORT INFORMATION
  Report Type: Spontaneous
  Country: US (occurrence: US)
  Receive Date: 20160308
  Receipt Date: 20160308
  Transmission Date: 20160526
  Serious: No
  Sender: FDA-Public Use
  Company Number: US-SMITH AND NEPHEW, INC-2015SMT00632

PATIENT
  Age: 78 Year
  Sex: Female
  Weight: 60.77 kg

DRUGS (4)
  1. SYNTHROID [Concomitant]
     Active Substance: LEVOTHYROXINE SODIUM
     Dosage: UNK
  2. COLLAGENASE SANTYL [Suspect]
     Active Substance: COLLAGENASE CLOSTRIDIUM HISTOLYTICUM
     Indication: SKIN ULCER
     Dosage: UNK UNK, 1X/DAY
     Route: 061
     Dates: start: 20151121, end: 20151212
  3. TYLENOL [Concomitant]
     Active Substance: ACETAMINOPHEN
     Dosage: UNK
  4. CENTRUM SILVER [Concomitant]
     Active Substance: MINERALS\VITAMINS
     Dosage: UNK, 1X/DAY

REACTIONS (10)
  - Application site pain [Not Recovered/Not Resolved]
  - Application site infection [Not Recovered/Not Resolved]
  - Dizziness [Unknown]
  - Memory impairment [Unknown]
  - Thinking abnormal [Not Recovered/Not Resolved]
  - Pallor [Not Recovered/Not Resolved]
  - Cardiovascular disorder [Unknown]
  - Drug ineffective [Unknown]
  - Disturbance in attention [Not Recovered/Not Resolved]
  - Wound complication [Not Recovered/Not Resolved]

NARRATIVE: CASE EVENT DATE: 2015
